FAERS Safety Report 24984016 (Version 2)
Quarter: 2025Q1

REPORT INFORMATION
  Report Type: Report from Study
  Country: CA (occurrence: CA)
  Receive Date: 20250219
  Receipt Date: 20250319
  Transmission Date: 20250409
  Serious: Yes (Life-Threatening)
  Sender: SAMSUNG BIOEPIS
  Company Number: CA-SAMSUNG BIOEPIS-SB-2025-06084

PATIENT
  Age: 29 Year
  Sex: Male

DRUGS (4)
  1. RENFLEXIS [Suspect]
     Active Substance: INFLIXIMAB-ABDA
     Indication: Crohn^s disease
     Route: 042
     Dates: start: 20181221
  2. RENFLEXIS [Suspect]
     Active Substance: INFLIXIMAB-ABDA
     Route: 042
     Dates: start: 20190104, end: 20200625
  3. RENFLEXIS [Suspect]
     Active Substance: INFLIXIMAB-ABDA
     Route: 042
     Dates: start: 20200821, end: 20230615
  4. RENFLEXIS [Suspect]
     Active Substance: INFLIXIMAB-ABDA
     Route: 042
     Dates: start: 20230810

REACTIONS (3)
  - Sensory loss [Recovered/Resolved]
  - Anaesthesia oral [Recovered/Resolved]
  - Hypoaesthesia [Recovered/Resolved]

NARRATIVE: CASE EVENT DATE: 20250102
